FAERS Safety Report 7449232-9 (Version None)
Quarter: 2011Q2

REPORT INFORMATION
  Report Type: 
  Country: None (occurrence: None)
  Receive Date: 20110502
  Receipt Date: 20110422
  Transmission Date: 20111010
  Serious: Yes (Hospitalization)
  Sender: FDA-Public Use
  Company Number: US-BIOGENIDEC-2011BI015811

PATIENT
  Sex: Male

DRUGS (1)
  1. AVONEX [Suspect]
     Indication: MULTIPLE SCLEROSIS
     Route: 030

REACTIONS (4)
  - URINARY TRACT INFECTION STAPHYLOCOCCAL [None]
  - ESCHERICHIA URINARY TRACT INFECTION [None]
  - INFECTED SKIN ULCER [None]
  - OSTEOMYELITIS [None]
